FAERS Safety Report 25673938 (Version 1)
Quarter: 2025Q3

REPORT INFORMATION
  Report Type: Report from Study
  Country: EU (occurrence: EU)
  Receive Date: 20250813
  Receipt Date: 20250813
  Transmission Date: 20251020
  Serious: Yes (Hospitalization)
  Sender: ROCHE
  Company Number: EU-ROCHE-10000356005

PATIENT
  Age: 39 Year
  Sex: Female

DRUGS (5)
  1. RITUXIMAB [Suspect]
     Active Substance: RITUXIMAB
     Indication: Systemic lupus erythematosus
     Route: 065
  2. RITUXIMAB [Suspect]
     Active Substance: RITUXIMAB
     Indication: Sjogren^s syndrome
  3. REMDESIVIR [Concomitant]
     Active Substance: REMDESIVIR
  4. NIRMATRELVIR [Concomitant]
     Active Substance: NIRMATRELVIR
  5. RITONAVIR [Concomitant]
     Active Substance: RITONAVIR

REACTIONS (3)
  - COVID-19 [Recovered/Resolved]
  - Haemophilus infection [Unknown]
  - Off label use [Unknown]
